FAERS Safety Report 8941665 (Version 2)
Quarter: 2013Q2

REPORT INFORMATION
  Report Type: Spontaneous
  Country: IT (occurrence: IT)
  Receive Date: 20121203
  Receipt Date: 20130410
  Transmission Date: 20140414
  Serious: Yes (Hospitalization)
  Sender: FDA-Public Use
  Company Number: IT-BRISTOL-MYERS SQUIBB COMPANY-17154907

PATIENT
  Age: 85 Year
  Sex: Male

DRUGS (3)
  1. COUMADIN TABS 5 MG [Suspect]
     Route: 048
     Dates: start: 20120601, end: 20121020
  2. TORVAST [Suspect]
     Dosage: TAB
     Route: 048
     Dates: start: 20120601, end: 20121116
  3. ZYLORIC [Suspect]
     Route: 048
     Dates: start: 20120601, end: 20121029

REACTIONS (2)
  - Eczema [Recovering/Resolving]
  - Impetigo [Recovering/Resolving]
